FAERS Safety Report 19521617 (Version 1)
Quarter: 2021Q3

REPORT INFORMATION
  Report Type: Spontaneous
  Country: US (occurrence: US)
  Receive Date: 20210713
  Receipt Date: 20210713
  Transmission Date: 20211014
  Serious: No
  Sender: FDA-Public Use
  Company Number: US-ASTRAZENECA-2021A568766

PATIENT
  Age: 65 Year
  Sex: Female
  Weight: 86.2 kg

DRUGS (1)
  1. BYDUREON BCISE [Suspect]
     Active Substance: EXENATIDE
     Indication: TYPE 2 DIABETES MELLITUS
     Route: 058
     Dates: start: 2020, end: 202104

REACTIONS (8)
  - Foreign body in throat [Unknown]
  - Inability to afford medication [Unknown]
  - Dyspnoea [Not Recovered/Not Resolved]
  - Dry throat [Unknown]
  - Dysphagia [Unknown]
  - Ill-defined disorder [Unknown]
  - Dysphonia [Unknown]
  - Cough [Not Recovered/Not Resolved]

NARRATIVE: CASE EVENT DATE: 2021
